FAERS Safety Report 6620256-4 (Version None)
Quarter: 2010Q1

REPORT INFORMATION
  Report Type: 
  Country: None (occurrence: None)
  Receive Date: 20100223
  Receipt Date: 20091125
  Transmission Date: 20100710
  Serious: No
  Sender: FDA-Public Use
  Company Number: 003477

PATIENT
  Sex: Male

DRUGS (4)
  1. CIMZIA [Suspect]
     Dosage: SUBCUTANEOUS
     Route: 058
     Dates: start: 20090102
  2. XIFAXAN [Concomitant]
  3. CYANOCOBALAMIN [Concomitant]
  4. IRON W/VITAMIN C [Concomitant]

REACTIONS (2)
  - INJECTION SITE PAIN [None]
  - MYALGIA [None]
